FAERS Safety Report 8906059 (Version 1)
Quarter: 2012Q4

REPORT INFORMATION
  Report Type: 
  Country: US (occurrence: US)
  Receive Date: 20121111
  Receipt Date: 20121111
  Transmission Date: 20130627
  Serious: No
  Sender: FDA-Public Use
  Company Number: US-009507513-1210USA011591

PATIENT
  Sex: Male

DRUGS (2)
  1. PEGINTERFERON ALFA-2B [Suspect]
     Indication: HEPATITIS C
     Dosage: 1.5 Microgram per kilogram, qw
  2. RIBAVIRIN [Suspect]
     Indication: HEPATITIS C
     Dosage: 800 - 1200 mg /day, (weight based)

REACTIONS (1)
  - Anaemia [Unknown]
